FAERS Safety Report 16960804 (Version 2)
Quarter: 2019Q4

REPORT INFORMATION
  Report Type: Spontaneous
  Country: US (occurrence: US)
  Receive Date: 20191025
  Receipt Date: 20191230
  Transmission Date: 20200122
  Serious: No
  Sender: FDA-Public Use
  Company Number: US-PFIZER INC-2019461078

PATIENT
  Age: 74 Year
  Sex: Male
  Weight: 111.11 kg

DRUGS (1)
  1. XELJANZ XR [Suspect]
     Active Substance: TOFACITINIB CITRATE
     Dosage: 11 MG, 1X/DAY
     Dates: start: 201911

REACTIONS (1)
  - Vitamin D decreased [Not Recovered/Not Resolved]

NARRATIVE: CASE EVENT DATE: 201911
